FAERS Safety Report 6017593-3 (Version None)
Quarter: 2008Q4

REPORT INFORMATION
  Report Type: 
  Country: None (occurrence: None)
  Receive Date: 20081223
  Receipt Date: 20081219
  Transmission Date: 20090506
  Serious: Yes (Hospitalization)
  Sender: FDA-Public Use
  Company Number: US-BIOGENIDEC-2008BI012752

PATIENT
  Age: 28 Year
  Sex: Female

DRUGS (2)
  1. AVONEX [Suspect]
     Indication: MULTIPLE SCLEROSIS
     Route: 030
     Dates: start: 20070521, end: 20070821
  2. AVONEX [Suspect]
     Route: 030
     Dates: start: 20080401

REACTIONS (3)
  - FALL [None]
  - MULTIPLE SCLEROSIS RELAPSE [None]
  - THROMBOSIS [None]
